FAERS Safety Report 22173314 (Version 1)
Quarter: 2023Q2

REPORT INFORMATION
  Report Type: Spontaneous
  Country: GB (occurrence: GB)
  Receive Date: 20230404
  Receipt Date: 20230404
  Transmission Date: 20230722
  Serious: Yes (Hospitalization, Other)
  Sender: FDA-Public Use
  Company Number: GB-ANIPHARMA-2023-UK-000072

PATIENT
  Age: 20 Year
  Sex: Male

DRUGS (1)
  1. CIPROFLOXACIN [Suspect]
     Active Substance: CIPROFLOXACIN
     Indication: Gastrointestinal bacterial overgrowth

REACTIONS (2)
  - Vitamin K deficiency [Recovered/Resolved]
  - Pericardial haemorrhage [Recovered/Resolved]
